FAERS Safety Report 4320719-0 (Version None)
Quarter: 2004Q1

REPORT INFORMATION
  Report Type: 
  Country: None (occurrence: None)
  Receive Date: 20040315
  Receipt Date: 20040128
  Transmission Date: 20041129
  Serious: No
  Sender: FDA-Public Use
  Company Number: 2004196728US

PATIENT
  Age: 47 Year
  Sex: Female

DRUGS (7)
  1. BEXTRA [Suspect]
     Indication: TOOTHACHE
     Dosage: 10 MG, QD
     Dates: start: 20040122, end: 20040127
  2. FIORICET [Concomitant]
  3. PHENOBARBITAL TAB [Concomitant]
  4. TYLENOL (CAPLET) [Concomitant]
  5. CAFFEINE [Concomitant]
  6. ESTRADIOL [Concomitant]
  7. ZOLOFT [Concomitant]

REACTIONS (4)
  - FEELING DRUNK [None]
  - PARAESTHESIA [None]
  - SOMNOLENCE [None]
  - TONGUE DISORDER [None]
